FAERS Safety Report 13145733 (Version 1)
Quarter: 2017Q1

REPORT INFORMATION
  Report Type: Spontaneous
  Country: US (occurrence: US)
  Receive Date: 20170124
  Receipt Date: 20170124
  Transmission Date: 20170428
  Serious: No
  Sender: FDA-Public Use
  Company Number: US-PFIZER INC-2017030336

PATIENT
  Age: 57 Year
  Sex: Female

DRUGS (3)
  1. METAXALONE. [Suspect]
     Active Substance: METAXALONE
     Indication: PAIN
     Dosage: 800 MG, AS NEEDED, (1 THREE TIMES A DAY)
     Route: 048
     Dates: start: 201603, end: 201612
  2. CYMBALTA [Concomitant]
     Active Substance: DULOXETINE HYDROCHLORIDE
     Dosage: 30 MG, UNK
  3. METAXALONE. [Suspect]
     Active Substance: METAXALONE
     Indication: MUSCLE TIGHTNESS

REACTIONS (1)
  - Drug ineffective [Recovered/Resolved]
